FAERS Safety Report 6286127-0 (Version None)
Quarter: 2009Q3

REPORT INFORMATION
  Report Type: 
  Country: None (occurrence: None)
  Receive Date: 20090728
  Receipt Date: 20090715
  Transmission Date: 20100115
  Serious: Yes (Hospitalization)
  Sender: FDA-Public Use
  Company Number: NO-ROCHE-644352

PATIENT
  Age: 37 Year
  Sex: Male

DRUGS (4)
  1. CELLCEPT [Suspect]
     Route: 065
  2. PREDNISOLONE [Suspect]
     Route: 065
  3. TACROLIMUS [Suspect]
     Route: 065
     Dates: start: 20060101, end: 20080101
  4. BASILIXIMAB [Concomitant]
     Route: 042

REACTIONS (2)
  - BLOOD CREATININE INCREASED [None]
  - HAEMOLYTIC URAEMIC SYNDROME [None]
